FAERS Safety Report 15495092 (Version 4)
Quarter: 2019Q1

REPORT INFORMATION
  Report Type: Report from Study
  Country: US (occurrence: US)
  Receive Date: 20181012
  Receipt Date: 20190206
  Transmission Date: 20190417
  Serious: No
  Sender: FDA-Public Use
  Company Number: PHEH2018US042377

PATIENT
  Sex: Female

DRUGS (2)
  1. COSENTYX [Suspect]
     Active Substance: SECUKINUMAB
     Indication: PSORIASIS
     Dosage: 150 MG, QMO
     Route: 058
  2. COSENTYX [Suspect]
     Active Substance: SECUKINUMAB
     Indication: PSORIATIC ARTHROPATHY
     Dosage: 300 MG, QMO
     Route: 058

REACTIONS (15)
  - Pyrexia [Recovered/Resolved]
  - Psoriasis [Unknown]
  - Nasopharyngitis [Unknown]
  - Malaise [Recovered/Resolved]
  - Cough [Recovered/Resolved]
  - Fatigue [Unknown]
  - Inflammation [Unknown]
  - Product storage error [Unknown]
  - Chest pain [Recovered/Resolved]
  - Erythema [Not Recovered/Not Resolved]
  - Gastric disorder [Recovered/Resolved]
  - Injection site bruising [Unknown]
  - Pruritus [Not Recovered/Not Resolved]
  - Fungal infection [Unknown]
  - Dyspnoea [Unknown]
